FAERS Safety Report 10042632 (Version 1)
Quarter: 2014Q1

REPORT INFORMATION
  Report Type: Spontaneous
  Country: FR (occurrence: FR)
  Receive Date: 20140327
  Receipt Date: 20140327
  Transmission Date: 20141002
  Serious: Yes (Hospitalization)
  Sender: FDA-Public Use
  Company Number: PHHY2014FR036911

PATIENT
  Age: 77 Year
  Sex: Male

DRUGS (3)
  1. COTAREG [Suspect]
     Indication: HYPERTENSION
     Dosage: 1 DF (VALS 160 MG AND HCTZ 25 MG), QD
     Route: 048
     Dates: end: 20140205
  2. MEDIATENSYL [Suspect]
     Indication: HYPERTENSION
     Dosage: 60 MG, ONCE/SINGLE
     Route: 048
     Dates: start: 20140204, end: 20140204
  3. NEBILOX [Suspect]
     Indication: HYPERTENSION
     Dosage: 5 MG, QD
     Route: 048

REACTIONS (2)
  - Malaise [Recovered/Resolved]
  - Hypotension [Recovered/Resolved]
